FAERS Safety Report 11188563 (Version 1)
Quarter: 2015Q2

REPORT INFORMATION
  Report Type: Report from Study
  Country: US (occurrence: US)
  Receive Date: 20150615
  Receipt Date: 20150615
  Transmission Date: 20150821
  Serious: Yes (Death)
  Sender: FDA-Public Use
  Company Number: US-ROCHE-1580298

PATIENT
  Age: 51 Year
  Sex: Male

DRUGS (13)
  1. LEUCOVORIN [Suspect]
     Active Substance: LEUCOVORIN
     Indication: METASTATIC GASTRIC CANCER
     Dosage: 13/FEB/2013, RECEIVED LAST DOSE PRIOR TO SERIOUS ADVERSE EVENT
     Route: 065
     Dates: start: 20130128
  2. 5-FU [Suspect]
     Active Substance: FLUOROURACIL
     Indication: METASTATIC GASTRIC CANCER
     Dosage: 13/FEB/2013, RECEIVED LAST DOSE PRIOR TO SERIOUS ADVERSE EVENT
     Route: 065
     Dates: start: 20130128
  3. METOCLOPRAMIDE. [Concomitant]
     Active Substance: METOCLOPRAMIDE
     Route: 065
     Dates: start: 20130211
  4. ONDANSETRAN [Concomitant]
     Active Substance: ONDANSETRON HYDROCHLORIDE
     Route: 065
     Dates: start: 20130211
  5. SITAGLIPTIN [Concomitant]
     Active Substance: SITAGLIPTIN
     Route: 065
     Dates: start: 20130124
  6. RAMIPRIL. [Concomitant]
     Active Substance: RAMIPRIL
     Route: 065
     Dates: start: 20130124
  7. DOCETAXEL. [Suspect]
     Active Substance: DOCETAXEL
     Indication: METASTATIC GASTRIC CANCER
     Dosage: 13/FEB/2013, RECEIVED LAST DOSE PRIOR TO SERIOUS ADVERSE EVENT
     Route: 065
     Dates: start: 20130128
  8. GLYBURIDE/METFORMIN [Concomitant]
     Active Substance: GLYBURIDE\METFORMIN
     Route: 065
     Dates: start: 20130124
  9. CISPLATIN. [Suspect]
     Active Substance: CISPLATIN
     Indication: METASTATIC GASTRIC CANCER
     Dosage: 13/FEB/2013, RECEIVED LAST DOSE PRIOR TO SERIOUS ADVERSE EVENT
     Route: 065
     Dates: start: 20130128
  10. ESOMEPRAZOLE MAGNESIUM. [Concomitant]
     Active Substance: ESOMEPRAZOLE MAGNESIUM
     Route: 065
     Dates: start: 20130124
  11. HYDROMORPHONE [Concomitant]
     Active Substance: HYDROMORPHONE
     Route: 065
     Dates: start: 20130211
  12. TAMSULOSIN [Concomitant]
     Active Substance: TAMSULOSIN
     Route: 065
     Dates: start: 20130211
  13. TRASTUZUMAB [Suspect]
     Active Substance: TRASTUZUMAB
     Indication: METASTATIC GASTRIC CANCER
     Dosage: 13/FEB/2013, RECEIVED LAST DOSE PRIOR TO SERIOUS ADVERSE EVENT
     Route: 065
     Dates: start: 20130128

REACTIONS (1)
  - Death [Fatal]

NARRATIVE: CASE EVENT DATE: 20130218
